FAERS Safety Report 9270123 (Version 2)
Quarter: 2013Q2

REPORT INFORMATION
  Report Type: Spontaneous
  Country: HU (occurrence: HU)
  Receive Date: 20130503
  Receipt Date: 20130503
  Transmission Date: 20140414
  Serious: Yes (Disabling, Other)
  Sender: FDA-Public Use
  Company Number: HU-ACTAVIS-2013-06878

PATIENT
  Age: 79 Year
  Sex: Female

DRUGS (2)
  1. DOCETAXEL (UNKNOWN) [Suspect]
     Indication: NON-SMALL CELL LUNG CANCER STAGE IV
     Dosage: 120 MG, UNKNOWN - 4 TIMES
     Route: 042
     Dates: start: 201111, end: 201201
  2. DOCETAXEL (UNKNOWN) [Suspect]
     Dosage: UNK

REACTIONS (6)
  - Toxic neuropathy [Not Recovered/Not Resolved]
  - Fall [Not Recovered/Not Resolved]
  - Fibula fracture [Not Recovered/Not Resolved]
  - Gait disturbance [None]
  - Non-small cell lung cancer stage IV [None]
  - Non-small cell lung cancer [None]
